FAERS Safety Report 15238523 (Version 3)
Quarter: 2018Q4

REPORT INFORMATION
  Report Type: Spontaneous
  Country: GB (occurrence: GB)
  Receive Date: 20180803
  Receipt Date: 20181017
  Transmission Date: 20190204
  Serious: Yes (Hospitalization)
  Sender: FDA-Public Use
  Company Number: GB-AUROBINDO-AUR-APL-2018-038760

PATIENT
  Age: 15 Year
  Sex: Male

DRUGS (2)
  1. PARACETAMOL TABLET 500MG [Suspect]
     Active Substance: ACETAMINOPHEN
     Indication: INTENTIONAL OVERDOSE
     Dosage: 8 GRAM, ONCE A DAY, (16 TAKEN IN TOTAL)
     Route: 048
     Dates: start: 20180702, end: 20180702
  2. PARACETAMOL TABLET 500MG [Suspect]
     Active Substance: ACETAMINOPHEN
     Indication: OVERDOSE
     Dosage: 16 TABLETS, SINGLE
     Route: 048
     Dates: start: 20180702, end: 20180702

REACTIONS (3)
  - Malaise [Recovered/Resolved]
  - Overdose [Recovered/Resolved]
  - Intentional overdose [Recovered/Resolved]

NARRATIVE: CASE EVENT DATE: 20180702
